FAERS Safety Report 7770513-3 (Version None)
Quarter: 2011Q3

REPORT INFORMATION
  Report Type: 
  Country: None (occurrence: None)
  Receive Date: 20110922
  Receipt Date: 20101008
  Transmission Date: 20111222
  Serious: No
  Sender: FDA-Public Use
  Company Number: US-ASTRAZENECA-2010SE43946

PATIENT
  Sex: Female
  Weight: 61.2 kg

DRUGS (9)
  1. LITHIUM CARBONATE [Concomitant]
  2. SEROQUEL XR [Suspect]
     Route: 048
  3. CYMBALTA [Concomitant]
  4. SEROQUEL XR [Suspect]
     Route: 048
  5. SEROQUEL XR [Suspect]
     Indication: POST-TRAUMATIC STRESS DISORDER
     Route: 048
  6. OTC OMEPRAZOLE [Concomitant]
  7. CLONAZEPAM [Concomitant]
  8. NEURONTIN [Concomitant]
  9. TRILEPTAL [Concomitant]

REACTIONS (3)
  - INSOMNIA [None]
  - WRONG TECHNIQUE IN DRUG USAGE PROCESS [None]
  - DRUG PRESCRIBING ERROR [None]
